FAERS Safety Report 4920484-X (Version None)
Quarter: 2006Q1

REPORT INFORMATION
  Report Type: 
  Country: None (occurrence: None)
  Receive Date: 20060223
  Receipt Date: 20051028
  Transmission Date: 20060701
  Serious: Yes (Death, Hospitalization)
  Sender: FDA-Public Use
  Company Number: US-MERCK-0510USA09944

PATIENT
  Age: 63 Year
  Sex: Female
  Weight: 62 kg

DRUGS (7)
  1. VIOXX [Suspect]
     Indication: ARTHRALGIA
     Route: 048
     Dates: start: 20000201, end: 20000426
  2. VIOXX [Suspect]
     Route: 048
     Dates: start: 20000426, end: 20000701
  3. VIOXX [Suspect]
     Indication: FIBROMYALGIA
     Route: 048
     Dates: start: 20000201, end: 20000426
  4. VIOXX [Suspect]
     Route: 048
     Dates: start: 20000426, end: 20000701
  5. NEURONTIN [Concomitant]
     Indication: EPILEPSY
     Route: 065
  6. HUMULIN [Concomitant]
     Indication: DIABETES MELLITUS
     Route: 065
  7. GLUCOPHAGE [Concomitant]
     Indication: DIABETES MELLITUS
     Route: 065

REACTIONS (9)
  - ANOXIC ENCEPHALOPATHY [None]
  - CARDIAC ARREST [None]
  - CARDIAC FAILURE CONGESTIVE [None]
  - COUGH [None]
  - DEATH [None]
  - DYSPNOEA [None]
  - HYPERGLYCAEMIA [None]
  - MYALGIA [None]
  - MYOCARDIAL INFARCTION [None]
